FAERS Safety Report 24642782 (Version 1)
Quarter: 2024Q4

REPORT INFORMATION
  Report Type: Spontaneous
  Country: NL (occurrence: NL)
  Receive Date: 20241120
  Receipt Date: 20241120
  Transmission Date: 20250115
  Serious: Yes (Other)
  Sender: REGENERON
  Company Number: NL-SANOFI-02299836

PATIENT
  Sex: Female

DRUGS (1)
  1. PRALUENT [Suspect]
     Active Substance: ALIROCUMAB
     Indication: Product used for unknown indication
     Dosage: UNK
     Route: 065
     Dates: start: 20241108

REACTIONS (3)
  - Infarction [Unknown]
  - Heart rate increased [Unknown]
  - Dyspnoea [Unknown]

NARRATIVE: CASE EVENT DATE: 20241101
